FAERS Safety Report 4394355-4 (Version None)
Quarter: 2004Q3

REPORT INFORMATION
  Report Type: 
  Country: None (occurrence: None)
  Receive Date: 20040709
  Receipt Date: 20040709
  Transmission Date: 20050211
  Serious: Yes (Other)
  Sender: FDA-Public Use
  Company Number: None

PATIENT
  Sex: Male
  Weight: 76.6579 kg

DRUGS (1)
  1. TAXOL [Suspect]
     Indication: OESOPHAGEAL CARCINOMA
     Dosage: 338 MG IV OVER 3 HR
     Route: 042
     Dates: start: 20040618

REACTIONS (4)
  - ARTHRALGIA [None]
  - BEDRIDDEN [None]
  - BLOOD CREATININE INCREASED [None]
  - MYALGIA [None]
